FAERS Safety Report 14999087 (Version 4)
Quarter: 2018Q3

REPORT INFORMATION
  Report Type: Spontaneous
  Country: US (occurrence: US)
  Receive Date: 20180612
  Receipt Date: 20180714
  Transmission Date: 20181010
  Serious: No
  Sender: FDA-Public Use
  Company Number: US-TEVA-2018-US-902710

PATIENT
  Sex: Male

DRUGS (3)
  1. TRAMADOL. [Suspect]
     Active Substance: TRAMADOL
     Indication: PAIN MANAGEMENT
     Dosage: 100 MILLIGRAM DAILY;
     Route: 048
  2. TRAMADOL. [Suspect]
     Active Substance: TRAMADOL
     Indication: ARTHRITIS
  3. TRAMADOL. [Suspect]
     Active Substance: TRAMADOL
     Indication: SPINAL COLUMN STENOSIS

REACTIONS (11)
  - Withdrawal syndrome [Unknown]
  - Headache [Unknown]
  - Insomnia [Recovered/Resolved]
  - Mood swings [Unknown]
  - Restless legs syndrome [Recovered/Resolved]
  - Irritability [Unknown]
  - Drug ineffective [Unknown]
  - Muscle twitching [Unknown]
  - Product formulation issue [Recovered/Resolved]
  - Restlessness [Recovered/Resolved]
  - Depressed mood [Recovered/Resolved]
